FAERS Safety Report 7672023-0 (Version None)
Quarter: 2011Q3

REPORT INFORMATION
  Report Type: 
  Country: None (occurrence: None)
  Receive Date: 20110809
  Receipt Date: 20110725
  Transmission Date: 20111222
  Serious: Yes (Hospitalization)
  Sender: FDA-Public Use
  Company Number: GB-WATSON-2011-11943

PATIENT
  Age: 68 Year
  Sex: Male

DRUGS (2)
  1. CABERGOLINE [Suspect]
     Indication: VISUAL IMPAIRMENT
  2. CABERGOLINE [Suspect]
     Indication: PROLACTINOMA
     Dosage: UNK

REACTIONS (1)
  - CEREBROSPINAL FLUID RHINORRHOEA [None]
